FAERS Safety Report 6094179-6 (Version None)
Quarter: 2009Q1

REPORT INFORMATION
  Report Type: 
  Country: None (occurrence: None)
  Receive Date: 20090224
  Receipt Date: 20090224
  Transmission Date: 20090719
  Serious: No
  Sender: FDA-Public Use
  Company Number: None

PATIENT
  Age: 55 Year
  Sex: Female
  Weight: 58.9676 kg

DRUGS (1)
  1. TOPIRAMATE [Suspect]
     Indication: MIGRAINE
     Dosage: 100MG  TWICE A DAY PO; 50 MG ONCE A DAY PO
     Route: 048
     Dates: start: 20060101, end: 20090223

REACTIONS (1)
  - ALOPECIA [None]
